FAERS Safety Report 5155025-8 (Version None)
Quarter: 2006Q4

REPORT INFORMATION
  Report Type: 
  Country: None (occurrence: None)
  Receive Date: 20061121
  Receipt Date: 20061023
  Transmission Date: 20070319
  Serious: Yes (Hospitalization)
  Sender: FDA-Public Use
  Company Number: JP-ROCHE-468244

PATIENT
  Age: 54 Year
  Sex: Female
  Weight: 45.2 kg

DRUGS (6)
  1. CAPECITABINE [Suspect]
     Indication: GASTRIC CANCER
     Dosage: 1000 MG/M2 GIVEN TWICE DAILY FOR 14 DAYS EVERY 3 WEEKS (FROM PM OF DAY 1 TO AM OF DAY 15 AS PER PRO+
     Route: 048
     Dates: start: 20060809, end: 20061017
  2. HERCEPTIN [Suspect]
     Indication: GASTRIC CANCER
     Dosage: LOADING DOSE 8MG/KG INFUSION ON DAY 1 AS PER PROTOCOL.
     Route: 042
     Dates: start: 20060809, end: 20060809
  3. HERCEPTIN [Suspect]
     Dosage: MAINTENANCE DOSE 6 MG/KG INFUSION, 1 PER 3 WEEKS AS PER PROTOCOL.
     Route: 042
     Dates: start: 20060830, end: 20061017
  4. CISPLATIN [Suspect]
     Indication: GASTRIC CANCER
     Dosage: 80 MG/M2 ON DAY 1 OF THREE WEEK CYCLE AS PER PROTOCOL.
     Route: 042
     Dates: start: 20060809, end: 20061017
  5. HUMAN INSULIN [Concomitant]
     Dosage: A TOTAL DAILY DOSE OF 4 UNIT WAS ADMINISTERED FROM 26 OCT 2006 - 28 OCT 2006. THEREAFTER, THE TOTAL+
     Dates: start: 20061026
  6. OMEPRAZOLE SODIUM [Concomitant]
     Dates: start: 20061028

REACTIONS (6)
  - ASCITES [None]
  - DISEASE PROGRESSION [None]
  - HYPERTENSION [None]
  - NAUSEA [None]
  - REVERSIBLE POSTERIOR LEUKOENCEPHALOPATHY SYNDROME [None]
  - VOMITING [None]
